FAERS Safety Report 8784381 (Version 2)
Quarter: 2012Q4

REPORT INFORMATION
  Report Type: Report from Study
  Country: US (occurrence: US)
  Receive Date: 20120913
  Receipt Date: 20121119
  Transmission Date: 20130627
  Serious: Yes (Death)
  Sender: FDA-Public Use
  Company Number: US-BRISTOL-MYERS SQUIBB COMPANY-16935777

PATIENT
  Age: 59 Year
  Sex: Male
  Weight: 78 kg

DRUGS (8)
  1. MEGACE [Suspect]
  2. SUNITINIB MALATE [Suspect]
     Indication: SMALL CELL LUNG CANCER STAGE UNSPECIFIED
     Dosage: 150mg on day 1 then 37.5mg once daily; 10 thcourse 225mg : last dose 13Aug2012
     Route: 048
     Dates: start: 20120131, end: 20120813
  3. VICODIN [Concomitant]
  4. ATIVAN [Concomitant]
  5. MORPHINE [Concomitant]
  6. REMERON [Concomitant]
  7. SYNTHROID [Concomitant]
  8. XANAX [Concomitant]

REACTIONS (1)
  - Death [Fatal]
